FAERS Safety Report 4372300-5 (Version None)
Quarter: 2004Q2

REPORT INFORMATION
  Report Type: 
  Country: None (occurrence: None)
  Receive Date: 20040602
  Receipt Date: 20040524
  Transmission Date: 20050107
  Serious: Yes (Death, Life-Threatening)
  Sender: FDA-Public Use
  Company Number: 2004CG00987

PATIENT
  Age: 32 Year
  Sex: Female
  Weight: 90 kg

DRUGS (4)
  1. MARCAINE [Suspect]
     Indication: EPIDURAL ANAESTHESIA
     Dates: start: 20000101, end: 20000101
  2. DIPRIVAN [Suspect]
     Indication: GENERAL ANAESTHESIA
     Dates: start: 20000101, end: 20000101
  3. NAROPIN [Concomitant]
     Indication: EPIDURAL ANAESTHESIA
     Dosage: 18 ML ONCE ED
     Route: 008
     Dates: start: 20000101, end: 20000101
  4. SEVOFLURANE [Suspect]
     Indication: GENERAL ANAESTHESIA
     Dates: start: 20000101, end: 20000101

REACTIONS (8)
  - AMNIOTIC FLUID EMBOLUS [None]
  - CARDIAC ARREST [None]
  - CIRCULATORY COLLAPSE [None]
  - DISSEMINATED INTRAVASCULAR COAGULATION [None]
  - DRUG EXPOSURE DURING PREGNANCY [None]
  - HYPOTENSION [None]
  - PULMONARY HAEMORRHAGE [None]
  - PULMONARY OEDEMA [None]
